FAERS Safety Report 8989916 (Version 1)
Quarter: 2012Q4

REPORT INFORMATION
  Report Type: 
  Country: JP (occurrence: JP)
  Receive Date: 20121228
  Receipt Date: 20121228
  Transmission Date: 20130627
  Serious: Yes (Other)
  Sender: FDA-Public Use
  Company Number: JP-GLAXOSMITHKLINE-B0854865A

PATIENT

DRUGS (4)
  1. VALTREX [Suspect]
     Indication: HERPES ZOSTER
     Route: 048
  2. LYRICA [Concomitant]
     Indication: PAIN
     Route: 048
  3. NEUROTROPIN [Concomitant]
     Indication: PAIN
     Route: 065
  4. NSAID [Concomitant]
     Indication: PAIN
     Route: 065

REACTIONS (1)
  - Renal impairment [Unknown]
